FAERS Safety Report 6837260-3 (Version None)
Quarter: 2010Q3

REPORT INFORMATION
  Report Type: 
  Country: None (occurrence: None)
  Receive Date: 20100713
  Receipt Date: 20070508
  Transmission Date: 20110219
  Serious: No
  Sender: FDA-Public Use
  Company Number: US-PFIZER INC-2007038104

PATIENT
  Sex: Male
  Weight: 86.363 kg

DRUGS (20)
  1. CHANTIX [Suspect]
     Indication: SMOKING CESSATION THERAPY
     Route: 048
     Dates: start: 20070501
  2. PLAVIX [Concomitant]
     Route: 048
  3. SUDAFED 12 HOUR [Concomitant]
     Route: 048
  4. ZYRTEC [Concomitant]
     Route: 048
  5. TOPROL-XL [Concomitant]
     Route: 048
  6. ALL OTHER THERAPEUTIC PRODUCTS [Concomitant]
  7. COMBIVENT [Concomitant]
     Route: 055
  8. MORPHINE [Concomitant]
     Route: 048
  9. LORTAB [Concomitant]
     Route: 048
  10. SOMA [Concomitant]
     Route: 048
  11. REMERON [Concomitant]
     Route: 048
  12. ZOLPIDEM TARTRATE [Concomitant]
     Route: 048
  13. KLONOPIN [Concomitant]
     Route: 048
  14. PROMETHAZINE [Concomitant]
     Route: 048
  15. AMOXICILLIN [Concomitant]
  16. IBUPROFEN [Concomitant]
  17. NEXIUM [Concomitant]
  18. LISINOPRIL [Concomitant]
  19. VYTORIN [Concomitant]
  20. FLONASE [Concomitant]

REACTIONS (2)
  - FEELING ABNORMAL [None]
  - NAUSEA [None]
